FAERS Safety Report 5113274-9 (Version None)
Quarter: 2006Q3

REPORT INFORMATION
  Report Type: 
  Country: None (occurrence: None)
  Receive Date: 20060920
  Receipt Date: 20060913
  Transmission Date: 20061208
  Serious: Yes (Hospitalization)
  Sender: FDA-Public Use
  Company Number: 2006068487

PATIENT
  Age: 52 Year
  Sex: Female

DRUGS (5)
  1. CALCIUM CARBONATE [Suspect]
     Indication: DYSPEPSIA
     Dosage: 900 MG, ORAL
     Route: 048
     Dates: start: 20060512, end: 20060520
  2. DIHYDROXYALUMINUM SODIUM CARBONATE (DIHYDROXYALUMINUM SODIUM CARBONATE [Concomitant]
  3. MULTIVITAMINS (ASCORBIC ACID, ERGOCALCIFEROL, FOLIC ACID, NICOTINAMIDE [Concomitant]
  4. IBUPROFEN [Concomitant]
  5. HYPERICUM PERFORATUM (HYPERICUM PERFORATUM) [Concomitant]

REACTIONS (5)
  - CYST [None]
  - METASTASES TO LIVER [None]
  - PELVIC NEOPLASM [None]
  - URINARY RETENTION [None]
  - URINARY TRACT INFECTION [None]
